FAERS Safety Report 7298072-2 (Version None)
Quarter: 2011Q1

REPORT INFORMATION
  Report Type: 
  Country: None (occurrence: None)
  Receive Date: 20110217
  Receipt Date: 20110207
  Transmission Date: 20110831
  Serious: Yes (Hospitalization, Other)
  Sender: FDA-Public Use
  Company Number: PHHY2011NL02341

PATIENT
  Sex: Female

DRUGS (7)
  1. ZOMETA [Suspect]
     Dosage: 4 MG
     Dates: start: 20101227
  2. RADIATION THERAPY [Concomitant]
     Dosage: UNK
     Dates: start: 20100401
  3. ZOMETA [Suspect]
     Indication: METASTASES TO LUNG
     Dosage: 4 MG
     Dates: start: 20100823
  4. ZOMETA [Suspect]
     Dosage: 4 MG
     Dates: start: 20101207
  5. ZOMETA [Suspect]
     Dosage: 4 MG
     Dates: start: 20110207
  6. RADIATION THERAPY [Concomitant]
     Dosage: UNK
     Dates: start: 20100301
  7. ZOMETA [Suspect]
     Dosage: 4 MG
     Dates: start: 20110117

REACTIONS (8)
  - PAIN [None]
  - NEOPLASM MALIGNANT [None]
  - SPINAL COMPRESSION FRACTURE [None]
  - BACK PAIN [None]
  - GENERAL PHYSICAL HEALTH DETERIORATION [None]
  - BEDRIDDEN [None]
  - DRUG INEFFECTIVE [None]
  - TERMINAL STATE [None]
